FAERS Safety Report 5963512-5 (Version None)
Quarter: 2008Q4

REPORT INFORMATION
  Report Type: 
  Country: None (occurrence: None)
  Receive Date: 20081124
  Receipt Date: 20081023
  Transmission Date: 20090506
  Serious: No
  Sender: FDA-Public Use
  Company Number: US-BAYER-200814195BCC

PATIENT
  Age: 79 Year
  Sex: Female
  Weight: 68 kg

DRUGS (2)
  1. ALEVE (CAPLET) [Suspect]
     Indication: CARTILAGE INJURY
     Route: 048
     Dates: start: 20071001
  2. TENORMIN [Concomitant]

REACTIONS (1)
  - JOINT SWELLING [None]
